FAERS Safety Report 8265532-7 (Version None)
Quarter: 2012Q2

REPORT INFORMATION
  Report Type: 
  Country: None (occurrence: None)
  Receive Date: 20120406
  Receipt Date: 20120328
  Transmission Date: 20120825
  Serious: Yes (Death)
  Sender: FDA-Public Use
  Company Number: JP-PFIZER INC-2012086284

PATIENT
  Age: 75 Year
  Sex: Male

DRUGS (2)
  1. IRINOTECAN HCL [Suspect]
     Indication: SMALL CELL LUNG CANCER STAGE UNSPECIFIED
     Dosage: 40 MG/M2, 1X/DAY
     Route: 041
     Dates: start: 20111221, end: 20120306
  2. CARBOPLATIN [Suspect]
     Indication: SMALL CELL LUNG CANCER STAGE UNSPECIFIED
     Dosage: ONCE A DAY
     Route: 041
     Dates: start: 20111221, end: 20120306

REACTIONS (3)
  - DIARRHOEA [None]
  - THROMBOCYTOPENIA [None]
  - NEUTROPENIA [None]
